FAERS Safety Report 20829836 (Version 3)
Quarter: 2023Q4

REPORT INFORMATION
  Report Type: Other
  Country: CA (occurrence: None)
  Receive Date: 20220513
  Receipt Date: 20231007
  Transmission Date: 20240109
  Serious: Yes (Hospitalization)
  Sender: FDA-Public Use
  Company Number: CA-ROCHE-3010957

PATIENT
  Age: 81 Year
  Sex: Male
  Weight: 88 kg

DRUGS (10)
  1. ACTEMRA [Suspect]
     Active Substance: TOCILIZUMAB
     Indication: Rheumatoid arthritis
     Dosage: ON HOLD
     Route: 042
     Dates: start: 20111020
  2. ACTEMRA [Suspect]
     Active Substance: TOCILIZUMAB
     Route: 042
     Dates: start: 20190506
  3. FOLIC ACID [Concomitant]
     Active Substance: FOLIC ACID
  4. GLICLAZIDE [Concomitant]
     Active Substance: GLICLAZIDE
  5. METFORMIN [Concomitant]
     Active Substance: METFORMIN HYDROCHLORIDE
  6. CILAZAPRIL ANHYDROUS [Concomitant]
     Active Substance: CILAZAPRIL ANHYDROUS
     Indication: Hypertension
  7. GLYBURIDE [Concomitant]
     Active Substance: GLYBURIDE
  8. METHOTREXATE [Concomitant]
     Active Substance: METHOTREXATE
  9. METOPROLOL [Concomitant]
     Active Substance: METOPROLOL
  10. PREDNISONE [Concomitant]
     Active Substance: PREDNISONE

REACTIONS (5)
  - Dementia Alzheimer^s type [Unknown]
  - COVID-19 [Unknown]
  - Hypoacusis [Unknown]
  - Myalgia [Unknown]
  - Bone pain [Unknown]

NARRATIVE: CASE EVENT DATE: 20220101
